FAERS Safety Report 6395609-2 (Version None)
Quarter: 2009Q4

REPORT INFORMATION
  Report Type: 
  Country: None (occurrence: None)
  Receive Date: 20091009
  Receipt Date: 20091002
  Transmission Date: 20100525
  Serious: Yes (Hospitalization)
  Sender: FDA-Public Use
  Company Number: US-GENENTECH-291705

PATIENT

DRUGS (5)
  1. BLINDED BEVACIZUMAB [Suspect]
     Indication: PROSTATE CANCER
     Dosage: 15 MG/KG, Q21D
     Route: 042
     Dates: start: 20060307
  2. BLINDED PLACEBO [Suspect]
     Indication: PROSTATE CANCER
     Dosage: 15 MG/KG, Q21D
     Route: 042
     Dates: start: 20060307
  3. DOCETAXEL [Suspect]
     Indication: PROSTATE CANCER
     Dosage: 75 MG/M2, Q21D
     Route: 042
     Dates: start: 20060307
  4. DEXAMETHASONE 0.5MG TAB [Concomitant]
     Indication: PREMEDICATION
     Dosage: 8 MG, UNK
     Route: 048
  5. PREDNISONE [Concomitant]
     Indication: PREMEDICATION
     Dosage: 5 MG, UNK
     Route: 048

REACTIONS (2)
  - ATRIAL FIBRILLATION [None]
  - DYSPNOEA [None]
